FAERS Safety Report 10236722 (Version 2)
Quarter: 2014Q3

REPORT INFORMATION
  Report Type: Spontaneous
  Country: US (occurrence: US)
  Receive Date: 20140613
  Receipt Date: 20140702
  Transmission Date: 20150326
  Serious: Yes (Hospitalization)
  Sender: FDA-Public Use
  Company Number: US-VIIV HEALTHCARE LIMITED-A1076433A

PATIENT
  Age: 47 Year
  Sex: Male

DRUGS (3)
  1. TRIZIVIR [Suspect]
     Active Substance: ABACAVIR SULFATE\LAMIVUDINE\ZIDOVUDINE
     Indication: HIV INFECTION
     Dosage: 1TAB TWICE PER DAY
     Route: 048
     Dates: start: 2009
  2. STEROIDS [Concomitant]
     Active Substance: UNSPECIFIED INGREDIENT
  3. ANTIBIOTICS [Concomitant]
     Active Substance: UNSPECIFIED INGREDIENT

REACTIONS (3)
  - White blood cell count decreased [Not Recovered/Not Resolved]
  - Investigation [Unknown]
  - Recurrent cancer [Not Recovered/Not Resolved]

NARRATIVE: CASE EVENT DATE: 20140527
